FAERS Safety Report 12097318 (Version 1)
Quarter: 2016Q1

REPORT INFORMATION
  Report Type: Spontaneous
  Country: US (occurrence: US)
  Receive Date: 20160221
  Receipt Date: 20160221
  Transmission Date: 20160526
  Serious: No
  Sender: FDA-Public Use
  Company Number: US-ACORDA-ACO_110783_2015

PATIENT
  Sex: Female

DRUGS (1)
  1. AMPYRA [Suspect]
     Active Substance: DALFAMPRIDINE
     Indication: GAIT DISTURBANCE
     Dosage: 10 MG, UNK
     Route: 065
     Dates: start: 20150409, end: 20150503

REACTIONS (6)
  - Balance disorder [Unknown]
  - Therapy cessation [Unknown]
  - Feeling abnormal [Unknown]
  - Fatigue [Unknown]
  - Therapeutic response unexpected [Unknown]
  - Muscle spasms [Unknown]
